FAERS Safety Report 8134590 (Version 24)
Quarter: 2013Q3

REPORT INFORMATION
  Report Type: Spontaneous
  Country: US (occurrence: US)
  Receive Date: 20110913
  Receipt Date: 20130920
  Transmission Date: 20140515
  Serious: Yes (Hospitalization, Other)
  Sender: FDA-Public Use
  Company Number: PHEH2011US03105

PATIENT
  Age: 56 Year
  Sex: Female

DRUGS (15)
  1. AREDIA [Suspect]
     Indication: METASTASES TO BONE
     Dosage: 90 MG, QMO
     Route: 042
     Dates: start: 19990422, end: 200411
  2. ZOMETA [Suspect]
     Indication: METASTASES TO BONE
     Dosage: 4 MG, QMO
     Dates: start: 20020607
  3. TYLENOL [Concomitant]
  4. BENADRYL [Concomitant]
  5. Z-PAK [Concomitant]
  6. TOPROL XL [Concomitant]
     Dosage: 50 MG, QD
  7. PERCOCET [Concomitant]
  8. CYMBALTA [Concomitant]
     Dosage: 60 MG, QD
  9. LORAZEPAM [Concomitant]
  10. PLETAL [Concomitant]
     Dosage: 50 MG, BID
  11. TRAZODONE [Concomitant]
     Dosage: 150 MG, PRN
  12. HYDROCHLOROTHIAZIDE [Concomitant]
  13. REGLAN                                  /USA/ [Concomitant]
  14. CELEBREX [Concomitant]
  15. TAGAMET [Concomitant]

REACTIONS (96)
  - Haemoptysis [Unknown]
  - Varicose vein [Unknown]
  - Haemorrhoids [Unknown]
  - Epidural lipomatosis [Unknown]
  - Intervertebral disc degeneration [Unknown]
  - Facet joint syndrome [Unknown]
  - Foot fracture [Unknown]
  - Arteriosclerosis [Unknown]
  - Lymph node calcification [Unknown]
  - Intervertebral disc protrusion [Unknown]
  - Dermal cyst [Unknown]
  - Angina pectoris [Unknown]
  - Chronic obstructive pulmonary disease [Unknown]
  - Bone pain [Unknown]
  - Spinal osteoarthritis [Unknown]
  - Fall [Unknown]
  - Vaginal discharge [Unknown]
  - Prothrombin time prolonged [Unknown]
  - Blood urea increased [Unknown]
  - Respiratory failure [Unknown]
  - Thrombosis [Unknown]
  - Osteoporosis [Unknown]
  - Coronary artery disease [Unknown]
  - Myocardial infarction [Unknown]
  - Hypoxia [Unknown]
  - Cyanosis [Unknown]
  - Odynophagia [Unknown]
  - Skin mass [Unknown]
  - Venous insufficiency [Unknown]
  - Hepatitis B surface antigen positive [Unknown]
  - Hyperuricaemia [Unknown]
  - VIIth nerve paralysis [Unknown]
  - Diplopia [Unknown]
  - Post concussion syndrome [Unknown]
  - Lipoma [Unknown]
  - Mumps [Unknown]
  - Pertussis [Unknown]
  - Rheumatic fever [Unknown]
  - Goitre [Unknown]
  - Contusion [Unknown]
  - Road traffic accident [Unknown]
  - Major depression [Unknown]
  - Scoliosis [Unknown]
  - Post-traumatic stress disorder [Unknown]
  - Bipolar disorder [Unknown]
  - Hypercalcaemia [Unknown]
  - Cardiac murmur [Unknown]
  - Hyperparathyroidism [Unknown]
  - Encephalopathy [Unknown]
  - Kyphosis [Unknown]
  - Vertebral foraminal stenosis [Unknown]
  - Chest wall mass [Unknown]
  - Osteosclerosis [Unknown]
  - Brain neoplasm [Unknown]
  - Mental status changes [Unknown]
  - Cerebral small vessel ischaemic disease [Unknown]
  - Brain oedema [Unknown]
  - Osteoarthritis [Unknown]
  - Central nervous system lesion [Unknown]
  - Vasogenic cerebral oedema [Unknown]
  - Metastases to central nervous system [Unknown]
  - Affective disorder [Unknown]
  - Gallbladder disorder [Unknown]
  - Thyroid neoplasm [Unknown]
  - Deep vein thrombosis [Unknown]
  - Diabetic neuropathy [Unknown]
  - Pulmonary mass [Unknown]
  - Urinary tract infection [Unknown]
  - Gout [Unknown]
  - Anxiety [Unknown]
  - Rhinitis allergic [Unknown]
  - Hypokalaemia [Unknown]
  - Pruritus [Unknown]
  - Fibromyalgia [Unknown]
  - Arthralgia [Unknown]
  - Alopecia [Unknown]
  - Heart rate irregular [Unknown]
  - Gait disturbance [Unknown]
  - Nightmare [Unknown]
  - Coordination abnormal [Unknown]
  - Memory impairment [Unknown]
  - Bronchitis [Unknown]
  - Dysuria [Unknown]
  - Abdominal pain [Unknown]
  - Musculoskeletal pain [Unknown]
  - Neck pain [Unknown]
  - Headache [Unknown]
  - Diarrhoea [Unknown]
  - Gastrooesophageal reflux disease [Unknown]
  - Local swelling [Unknown]
  - Pain in extremity [Unknown]
  - Dyspnoea [Unknown]
  - Cough [Unknown]
  - Laryngitis [Unknown]
  - Groin pain [Unknown]
  - Vitamin D deficiency [Unknown]
